FAERS Safety Report 20451701 (Version 2)
Quarter: 2022Q1

REPORT INFORMATION
  Report Type: Report from Study
  Country: CN (occurrence: CN)
  Receive Date: 20220209
  Receipt Date: 20220214
  Transmission Date: 20220423
  Serious: Yes (Hospitalization)
  Sender: FDA-Public Use
  Company Number: CN-JNJFOC-20220214137

PATIENT
  Age: 64 Year
  Sex: Male
  Weight: 68.8 kg

DRUGS (9)
  1. AMIVANTAMAB [Suspect]
     Active Substance: AMIVANTAMAB
     Indication: Non-small cell lung cancer
     Dosage: IVGTT, SPLIT DOSE 350 MG ON 24-NOV AND 700 MG ON 25-NOV, DATE OF MOST RECENT DOSE: 03-FEB-2022
     Route: 042
     Dates: start: 20211124, end: 20211124
  2. AMIVANTAMAB [Suspect]
     Active Substance: AMIVANTAMAB
     Dosage: IVGTT
     Route: 042
     Dates: start: 20211201, end: 20211201
  3. AMIVANTAMAB [Suspect]
     Active Substance: AMIVANTAMAB
     Dosage: IVGTT
     Route: 042
     Dates: start: 20220106, end: 20220106
  4. AMIVANTAMAB [Suspect]
     Active Substance: AMIVANTAMAB
     Dosage: IVGTT
     Route: 042
     Dates: start: 20220119, end: 20220119
  5. AMIVANTAMAB [Suspect]
     Active Substance: AMIVANTAMAB
     Dosage: IVGTT, C3D15, VIA INFUSION PUMP
     Route: 042
     Dates: start: 20220203, end: 20220203
  6. AMIVANTAMAB [Suspect]
     Active Substance: AMIVANTAMAB
     Dosage: IVGTT, SPLIT DOSE 350 MG ON 24-NOV AND 700 MG ON 25-NOV, DATE OF MOST RECENT DOSE: 03-FEB-2022
     Route: 042
     Dates: start: 20211125, end: 20211125
  7. INSULIN ASPART 30 [Concomitant]
     Route: 026
     Dates: start: 201908
  8. RIVAROXABAN [Concomitant]
     Active Substance: RIVAROXABAN
     Indication: Venous thrombosis limb
     Route: 048
     Dates: start: 20211130
  9. KANG FU XIN [Concomitant]
     Indication: Stomatitis
     Route: 048
     Dates: start: 20211206

REACTIONS (1)
  - Pleural effusion [Recovered/Resolved]

NARRATIVE: CASE EVENT DATE: 20220203
